FAERS Safety Report 5122742-5 (Version None)
Quarter: 2006Q4

REPORT INFORMATION
  Report Type: 
  Country: None (occurrence: None)
  Receive Date: 20061005
  Receipt Date: 20060915
  Transmission Date: 20070319
  Serious: Yes (Hospitalization)
  Sender: FDA-Public Use
  Company Number: US200609005099

PATIENT
  Age: 70 Year
  Sex: Female
  Weight: 143.1 kg

DRUGS (6)
  1. DULOXETINE HYDROCHLORIDE             (DULOXETINE HYDROCHLORIDE ) [Suspect]
     Indication: DEPRESSION
     Dosage: 30 MG, 2/D, ORAL
     Route: 048
     Dates: start: 20060622, end: 20060815
  2. XANAX [Concomitant]
  3. STALEVO                               (CARBIDOPA, ENTACAPONE, LEVODOPA [Concomitant]
  4. SINEMET [Concomitant]
  5. NEXIUM [Concomitant]
  6. MVI                             (VITAMINS NOS) [Concomitant]

REACTIONS (2)
  - CONSTIPATION [None]
  - INTESTINAL OBSTRUCTION [None]
